FAERS Safety Report 10599735 (Version 7)
Quarter: 2016Q4

REPORT INFORMATION
  Report Type: Spontaneous
  Country: US (occurrence: US)
  Receive Date: 20141121
  Receipt Date: 20161010
  Transmission Date: 20170206
  Serious: Yes (Hospitalization, Disabling, Other)
  Sender: FDA-Public Use
  Company Number: US-009507513-1411USA009477

PATIENT
  Sex: Female

DRUGS (4)
  1. FOSAMAX [Suspect]
     Active Substance: ALENDRONATE SODIUM
     Dosage: 70 MG, UNK
     Route: 048
     Dates: end: 200808
  2. FOSAMAX [Suspect]
     Active Substance: ALENDRONATE SODIUM
     Indication: OSTEOPOROSIS
     Dosage: 70 MG, UNK
     Route: 048
     Dates: start: 200003, end: 200310
  3. ALENDRONATE SODIUM. [Suspect]
     Active Substance: ALENDRONATE SODIUM
     Indication: OSTEOPOROSIS
     Dosage: 70 MG, UNK
     Route: 048
     Dates: start: 20090113, end: 201210
  4. ALENDRONATE SODIUM. [Suspect]
     Active Substance: ALENDRONATE SODIUM
     Indication: OSTEOPOROSIS
     Dosage: 70 MG, UNK
     Route: 048
     Dates: start: 200809, end: 200812

REACTIONS (12)
  - Femur fracture [Recovered/Resolved]
  - Pain in extremity [Unknown]
  - Hypothyroidism [Unknown]
  - Low turnover osteopathy [Not Recovered/Not Resolved]
  - Nephrolithiasis [Unknown]
  - Pain in extremity [Unknown]
  - Pain in extremity [Unknown]
  - Medical device discomfort [Recovered/Resolved]
  - Weight increased [Unknown]
  - Femur fracture [Recovering/Resolving]
  - Nephrolithiasis [Unknown]
  - Endodontic procedure [Unknown]

NARRATIVE: CASE EVENT DATE: 2004
